FAERS Safety Report 4342050-X (Version None)
Quarter: 2004Q1

REPORT INFORMATION
  Report Type: 
  Country: None (occurrence: None)
  Receive Date: 20040329
  Receipt Date: 20040120
  Transmission Date: 20041129
  Serious: No
  Sender: FDA-Public Use
  Company Number: 04P-13-0247623-00

PATIENT
  Age: 57 Year
  Sex: Female
  Weight: 108.8633 kg

DRUGS (10)
  1. HUMIRA [Suspect]
     Indication: RHEUMATOID ARTHRITIS
     Dosage: 40 MG, 1 IN 2 WK, SUBCUTANEOUS
     Route: 058
     Dates: start: 20031001
  2. PREDNISONE [Concomitant]
  3. NABUMETONE [Concomitant]
  4. METHOTREXATE SODIUM [Concomitant]
  5. CONJUGATED ESTROGEN [Concomitant]
  6. FLUOXETINE HCL [Concomitant]
  7. LORATADINE [Concomitant]
  8. FOLIC ACID [Concomitant]
  9. RANITIDINE HYDROCHLORIDE [Concomitant]
  10. LEVOTHYROXINE SODIUM [Concomitant]

REACTIONS (4)
  - EYE PRURITUS [None]
  - KERATOCONJUNCTIVITIS SICCA [None]
  - VISUAL DISTURBANCE [None]
  - VITREOUS FLOATERS [None]
